FAERS Safety Report 13669238 (Version 1)
Quarter: 2017Q2

REPORT INFORMATION
  Report Type: Spontaneous
  Country: GB (occurrence: GB)
  Receive Date: 20170620
  Receipt Date: 20170620
  Transmission Date: 20170830
  Serious: Yes (Other)
  Sender: FDA-Public Use
  Company Number: GB-PFIZER INC-2017264035

PATIENT
  Age: 48 Year
  Sex: Female

DRUGS (1)
  1. ESTRADIOL. [Suspect]
     Active Substance: ESTRADIOL
     Dosage: AT NIGHT FOR 2 WEEKS THEN TWICE WEEKLY.
     Route: 067

REACTIONS (2)
  - Inappropriate schedule of drug administration [Unknown]
  - Anaphylactic shock [Recovering/Resolving]
